FAERS Safety Report 5827263-X (Version None)
Quarter: 2008Q3

REPORT INFORMATION
  Report Type: 
  Country: None (occurrence: None)
  Receive Date: 20080725
  Receipt Date: 20080714
  Transmission Date: 20090109
  Serious: Yes (Life-Threatening, Other)
  Sender: FDA-Public Use
  Company Number: 2008JP003085

PATIENT
  Age: 69 Year
  Sex: Male
  Weight: 56 kg

DRUGS (17)
  1. TACROLIMUS [Suspect]
     Indication: MYASTHENIA GRAVIS
     Dosage: 2 MG, ORAL; 3 MG, ORAL; 4 MG, ORAL
     Route: 048
     Dates: start: 20070810, end: 20070816
  2. TACROLIMUS [Suspect]
     Indication: MYASTHENIA GRAVIS
     Dosage: 2 MG, ORAL; 3 MG, ORAL; 4 MG, ORAL
     Route: 048
     Dates: start: 20070817, end: 20070820
  3. TACROLIMUS [Suspect]
     Indication: MYASTHENIA GRAVIS
     Dosage: 2 MG, ORAL; 3 MG, ORAL; 4 MG, ORAL
     Route: 048
     Dates: start: 20070821, end: 20070916
  4. PREDNISOLONE [Suspect]
     Indication: MYASTHENIA GRAVIS
     Dosage: 10 MG, ORAL; 30 MG, ORAL; 50 MG, ORAL; 45 MG, ORAL; 40 MG, ORAL; 35 MG, ORAL
     Route: 048
     Dates: end: 20070909
  5. PREDNISOLONE [Suspect]
     Indication: MYASTHENIA GRAVIS
     Dosage: 10 MG, ORAL; 30 MG, ORAL; 50 MG, ORAL; 45 MG, ORAL; 40 MG, ORAL; 35 MG, ORAL
     Route: 048
     Dates: start: 20070910, end: 20070916
  6. PREDNISOLONE [Suspect]
     Indication: MYASTHENIA GRAVIS
     Dosage: 10 MG, ORAL; 30 MG, ORAL; 50 MG, ORAL; 45 MG, ORAL; 40 MG, ORAL; 35 MG, ORAL
     Route: 048
     Dates: start: 20070929, end: 20071026
  7. PREDNISOLONE [Suspect]
     Indication: MYASTHENIA GRAVIS
     Dosage: 10 MG, ORAL; 30 MG, ORAL; 50 MG, ORAL; 45 MG, ORAL; 40 MG, ORAL; 35 MG, ORAL
     Route: 048
     Dates: start: 20071027, end: 20071102
  8. PREDNISOLONE [Suspect]
     Indication: MYASTHENIA GRAVIS
     Dosage: 10 MG, ORAL; 30 MG, ORAL; 50 MG, ORAL; 45 MG, ORAL; 40 MG, ORAL; 35 MG, ORAL
     Route: 048
     Dates: start: 20071103, end: 20071109
  9. PREDNISOLONE [Suspect]
     Indication: MYASTHENIA GRAVIS
     Dosage: 10 MG, ORAL; 30 MG, ORAL; 50 MG, ORAL; 45 MG, ORAL; 40 MG, ORAL; 35 MG, ORAL
     Route: 048
     Dates: start: 20071110, end: 20071130
  10. SOLU-MEDROL [Suspect]
     Indication: MYASTHENIA GRAVIS
     Dosage: 1000 MG, IV NOS
     Route: 042
     Dates: start: 20070917, end: 20070919
  11. MYTELASE (AMBENONIUM CHLORIDE) PER ORAL NOS [Concomitant]
  12. BLOPRESS (CANDESARTAN CILEXETIL) PER ORAL NOS [Concomitant]
  13. AMARYL (GLIMEPIRIDE) PER ORAL NOS [Concomitant]
  14. BEZATOL (BEZAFIBRATE) PER ORAL NOS [Concomitant]
  15. LOCHOL (LOVASTATIN) PER ORAL NOS [Concomitant]
  16. BASEN (VOGLIBOSE) PER ORAL NOS [Concomitant]
  17. STOGAR (LAFUTIDINE) PER ORAL NOS [Concomitant]

REACTIONS (6)
  - LYMPHOCYTE COUNT DECREASED [None]
  - MITRAL VALVE INCOMPETENCE [None]
  - MYASTHENIA GRAVIS CRISIS [None]
  - NEUTROPHIL COUNT INCREASED [None]
  - VENTRICULAR EXTRASYSTOLES [None]
  - WHITE BLOOD CELL COUNT INCREASED [None]
